FAERS Safety Report 8941081 (Version 1)
Quarter: 2012Q4

REPORT INFORMATION
  Report Type: 
  Country: CA (occurrence: CA)
  Receive Date: 20121203
  Receipt Date: 20121203
  Transmission Date: 20130627
  Serious: Yes (Other)
  Sender: FDA-Public Use
  Company Number: CA-ROCHE-1162591

PATIENT

DRUGS (1)
  1. XOLAIR [Suspect]
     Indication: PRODUCT USED FOR UNKNOWN INDICATION
     Route: 065
     Dates: start: 20070621

REACTIONS (6)
  - Angina pectoris [Unknown]
  - Chest discomfort [Unknown]
  - Nasopharyngitis [Unknown]
  - Blood immunoglobulin E increased [Unknown]
  - Malaise [Unknown]
  - Condition aggravated [Unknown]
